FAERS Safety Report 15805774 (Version 22)
Quarter: 2023Q1

REPORT INFORMATION
  Report Type: Spontaneous
  Country: US (occurrence: US)
  Receive Date: 20190110
  Receipt Date: 20230331
  Transmission Date: 20230417
  Serious: Yes (Life-Threatening, Hospitalization, Disabling, Other)
  Sender: FDA-Public Use
  Company Number: US-009507513-1901USA000599

PATIENT
  Sex: Female

DRUGS (5)
  1. PEGINTRON [Suspect]
     Active Substance: PEGINTERFERON ALFA-2B
     Indication: Hepatitis C
     Dosage: UNK
     Route: 058
     Dates: start: 201102, end: 201106
  2. REBETOL [Suspect]
     Active Substance: RIBAVIRIN
     Indication: Hepatitis C
     Dosage: UNK
     Route: 048
     Dates: start: 201102, end: 201106
  3. INTRON A [Suspect]
     Active Substance: INTERFERON ALFA-2B
     Dosage: UNK
     Dates: start: 201102, end: 201106
  4. PEGASYS [Suspect]
     Active Substance: PEGINTERFERON ALFA-2A
     Indication: Viral infection
     Dosage: UNK
     Dates: start: 2012
  5. CYMBALTA [Concomitant]
     Active Substance: DULOXETINE HYDROCHLORIDE
     Dosage: 60 MILLIGRAM, QD
     Dates: start: 2012

REACTIONS (77)
  - Sjogren^s syndrome [Not Recovered/Not Resolved]
  - Bone pain [Not Recovered/Not Resolved]
  - Immunodeficiency common variable [Not Recovered/Not Resolved]
  - Gait disturbance [Not Recovered/Not Resolved]
  - Dementia [Not Recovered/Not Resolved]
  - Pulmonary mass [Not Recovered/Not Resolved]
  - Bone density decreased [Not Recovered/Not Resolved]
  - Herpes simplex [Not Recovered/Not Resolved]
  - Nosocomial infection [Not Recovered/Not Resolved]
  - Loss of libido [Not Recovered/Not Resolved]
  - Bronchitis [Not Recovered/Not Resolved]
  - Pain in extremity [Not Recovered/Not Resolved]
  - Platelet count decreased [Not Recovered/Not Resolved]
  - White blood cell count decreased [Not Recovered/Not Resolved]
  - Pneumonia [Not Recovered/Not Resolved]
  - Nausea [Not Recovered/Not Resolved]
  - Vomiting [Not Recovered/Not Resolved]
  - Depression [Not Recovered/Not Resolved]
  - Myalgia [Not Recovered/Not Resolved]
  - Vein rupture [Unknown]
  - Pneumothorax [Unknown]
  - Acquired left ventricle outflow tract obstruction [Unknown]
  - Helicobacter infection [Unknown]
  - Cytomegalovirus infection [Unknown]
  - Syncope [Unknown]
  - Device dislocation [Unknown]
  - Pneumonitis [Unknown]
  - Cardiac failure [Unknown]
  - Spinal laminectomy [Unknown]
  - Executive dysfunction [Not Recovered/Not Resolved]
  - Fibromyalgia [Not Recovered/Not Resolved]
  - Illness [Not Recovered/Not Resolved]
  - Bone disorder [Unknown]
  - Central venous catheterisation [Unknown]
  - Ill-defined disorder [Not Recovered/Not Resolved]
  - Gingival bleeding [Unknown]
  - Alopecia [Unknown]
  - Asthenia [Not Recovered/Not Resolved]
  - Vitamin D deficiency [Not Recovered/Not Resolved]
  - Anaemia [Not Recovered/Not Resolved]
  - Spinal fusion surgery [Not Recovered/Not Resolved]
  - Respiratory tract infection [Unknown]
  - Dysgraphia [Unknown]
  - Quality of life decreased [Unknown]
  - Emotional disorder [Unknown]
  - Condition aggravated [Unknown]
  - Hand deformity [Unknown]
  - Chronic fatigue syndrome [Unknown]
  - Quality of life decreased [Not Recovered/Not Resolved]
  - Scoliosis [Unknown]
  - Systolic anterior motion of mitral valve [Unknown]
  - Thyroid hormones decreased [Unknown]
  - Atelectasis [Not Recovered/Not Resolved]
  - Epstein-Barr virus infection [Unknown]
  - Left ventricular hypertrophy [Unknown]
  - Adverse drug reaction [Unknown]
  - Thyroid disorder [Unknown]
  - Ill-defined disorder [Unknown]
  - Muscle spasms [Unknown]
  - Pain [Unknown]
  - Herpes zoster [Unknown]
  - Heart rate increased [Unknown]
  - Migraine [Not Recovered/Not Resolved]
  - Intervertebral disc degeneration [Unknown]
  - Blood thyroid stimulating hormone increased [Unknown]
  - Hypertension [Unknown]
  - Arthritis [Unknown]
  - Upper respiratory tract infection [Not Recovered/Not Resolved]
  - Tobacco abuse [Unknown]
  - Chronic obstructive pulmonary disease [Not Recovered/Not Resolved]
  - Carpal tunnel syndrome [Unknown]
  - Vitamin B12 deficiency [Unknown]
  - Colitis [Unknown]
  - Respiratory tract infection viral [Not Recovered/Not Resolved]
  - Osteoporosis [Unknown]
  - Mediastinal mass [Unknown]
  - Lymphadenopathy [Unknown]

NARRATIVE: CASE EVENT DATE: 20110101
